FAERS Safety Report 15379127 (Version 1)
Quarter: 2018Q3

REPORT INFORMATION
  Report Type: Spontaneous
  Country: US (occurrence: US)
  Receive Date: 20180913
  Receipt Date: 20180913
  Transmission Date: 20181010
  Serious: Yes (Hospitalization, Other)
  Sender: FDA-Public Use
  Company Number: US-DSJP-DSU-2017-137396

PATIENT

DRUGS (3)
  1. BENICAR [Suspect]
     Active Substance: OLMESARTAN MEDOXOMIL
     Indication: HYPERTENSION
     Dosage: 20 MG, UNK
     Dates: start: 20110921
  2. BENICAR [Suspect]
     Active Substance: OLMESARTAN MEDOXOMIL
     Dosage: 40 MG, UNK
     Dates: start: 2017
  3. BENICAR [Suspect]
     Active Substance: OLMESARTAN MEDOXOMIL
     Dosage: 40 MG, QD
     Route: 048
     Dates: start: 20140319, end: 201707

REACTIONS (11)
  - Sprue-like enteropathy [Recovering/Resolving]
  - Inguinal hernia [Unknown]
  - Gallbladder polyp [Not Recovered/Not Resolved]
  - Haemorrhoids [Not Recovered/Not Resolved]
  - Post procedural diarrhoea [Unknown]
  - Biliary dyskinesia [Recovered/Resolved]
  - Gastrooesophageal reflux disease [Not Recovered/Not Resolved]
  - Hypotension [Unknown]
  - Cholelithiasis [Recovered/Resolved]
  - Irritable bowel syndrome [Not Recovered/Not Resolved]
  - Gastroenteritis viral [Unknown]

NARRATIVE: CASE EVENT DATE: 2014
